FAERS Safety Report 8333170-3 (Version None)
Quarter: 2012Q2

REPORT INFORMATION
  Report Type: 
  Country: None (occurrence: None)
  Receive Date: 20120503
  Receipt Date: 20120426
  Transmission Date: 20120825
  Serious: Yes (Other)
  Sender: FDA-Public Use
  Company Number: GB-PFIZER INC-2012103419

PATIENT
  Age: 69 Year
  Sex: Male

DRUGS (7)
  1. VIAGRA [Suspect]
     Dosage: 100 MG, UNK
  2. ACETAMINOPHEN AND CODEINE PHOSPHATE [Concomitant]
  3. TETRACYCLINE [Concomitant]
  4. LERCANIDIPINE [Concomitant]
     Dosage: UNK
  5. BETAHISTINE HYDROCHLORIDE [Concomitant]
     Dosage: 16 MG, 3X/DAY
  6. ALLOPURINOL [Concomitant]
     Dosage: 300 UNK, UNK
  7. MELOXICAM [Concomitant]
     Dosage: UNK

REACTIONS (3)
  - FOOD INTERACTION [None]
  - CEREBRAL HAEMORRHAGE [None]
  - VISUAL FIELD DEFECT [None]
